FAERS Safety Report 7553484-4 (Version None)
Quarter: 2011Q2

REPORT INFORMATION
  Report Type: 
  Country: None (occurrence: None)
  Receive Date: 20110617
  Receipt Date: 20090412
  Transmission Date: 20111010
  Serious: Yes (Death, Other)
  Sender: FDA-Public Use
  Company Number: US-BAYER-200917918NA

PATIENT
  Age: 74 Year
  Sex: Male
  Weight: 85 kg

DRUGS (23)
  1. RED BLOOD CELLS [Concomitant]
     Dosage: 18 U, ONCE
     Route: 042
     Dates: start: 19990618
  2. PROCARDIA [Concomitant]
  3. LUPRON [Concomitant]
     Indication: PROSTATE CANCER
  4. VERSED [Concomitant]
     Dosage: 15 MG
     Dates: start: 19990618
  5. TRASYLOL [Suspect]
     Dosage: 25ML/HR INFUSION, INCREASED TO 50ML/HR FOR LAST HALF HOUR
     Route: 042
     Dates: start: 19990618, end: 19990618
  6. BUMEX [Concomitant]
  7. DIURIL [Concomitant]
  8. TRASYLOL [Suspect]
     Indication: ANGIOPLASTY
     Dosage: 100ML LOADING DOSE
     Route: 040
     Dates: start: 19990618, end: 19990618
  9. PLASMA [Concomitant]
     Dosage: 16 U, ONCE
     Route: 042
     Dates: start: 19990618
  10. DOBUTAMINE HYDROCHLORIDE [Concomitant]
  11. ATENOLOL [Concomitant]
  12. TRASYLOL [Suspect]
     Indication: AORTIC ANEURYSM REPAIR
     Dosage: 0.5 ML, ONCE, INITIAL TEST DOSE
     Route: 042
     Dates: start: 19990618, end: 19990618
  13. COMBIVENT [Concomitant]
  14. ALBUMIN (HUMAN) [Concomitant]
     Dosage: 2000 ML, ONCE
     Route: 042
  15. FENTANYL-100 [Concomitant]
     Dosage: 250 MCG
     Dates: start: 19990618
  16. CRYOPRECIPITATES [Concomitant]
     Dosage: 10 U, ONCE
     Route: 042
  17. CALCIUM CHLORIDE [Concomitant]
     Dosage: 500 MG
     Dates: start: 19990618
  18. HEPARIN [Concomitant]
     Dosage: 34,000 UNITS
     Dates: start: 19990618
  19. LASIX [Concomitant]
     Dosage: 60 MG
     Dates: start: 19990618
  20. SODIUM BICARBONATE [Concomitant]
     Dosage: 7 AMPS
     Dates: start: 19990618
  21. PLATELETS [Concomitant]
     Dosage: 18 U, ONCE
     Route: 042
     Dates: start: 19990618
  22. HUMIBID [Concomitant]
  23. NEOSYNEPHRINE [Concomitant]
     Dosage: 150 MG
     Dates: start: 19990618

REACTIONS (14)
  - RENAL FAILURE [None]
  - RENAL INJURY [None]
  - ANXIETY [None]
  - RENAL IMPAIRMENT [None]
  - STRESS [None]
  - UNEVALUABLE EVENT [None]
  - FEAR [None]
  - INJURY [None]
  - MULTI-ORGAN FAILURE [None]
  - DEATH [None]
  - MYOCARDIAL INFARCTION [None]
  - EMOTIONAL DISTRESS [None]
  - ANHEDONIA [None]
  - PAIN [None]
